FAERS Safety Report 6442539-3 (Version None)
Quarter: 2009Q4

REPORT INFORMATION
  Report Type: 
  Country: None (occurrence: None)
  Receive Date: 20091112
  Receipt Date: 20091030
  Transmission Date: 20100525
  Serious: Yes (Congenital Anomaly)
  Sender: FDA-Public Use
  Company Number: 000547

PATIENT

DRUGS (9)
  1. VIMPAT [Suspect]
     Indication: EPILEPSY
     Dosage: (50 MG QD TRANSPLACENTAL), (100 MG QD TRANSPLACENTAL), (50 MG QD TRANSPLACENTAL)
     Route: 064
     Dates: start: 20090120, end: 20090124
  2. VIMPAT [Suspect]
     Indication: EPILEPSY
     Dosage: (50 MG QD TRANSPLACENTAL), (100 MG QD TRANSPLACENTAL), (50 MG QD TRANSPLACENTAL)
     Route: 064
     Dates: start: 20090125, end: 20090128
  3. VIMPAT [Suspect]
     Indication: EPILEPSY
     Dosage: (50 MG QD TRANSPLACENTAL), (100 MG QD TRANSPLACENTAL), (50 MG QD TRANSPLACENTAL)
     Route: 064
     Dates: start: 20090129, end: 20090129
  4. KEPPRA [Concomitant]
  5. LAMOTRIGINE [Concomitant]
  6. PHENHYDAN /00017401/ [Concomitant]
  7. LUMINAL /00023201/ [Concomitant]
  8. FRISIUM [Concomitant]
  9. ZONEGRAN [Concomitant]

REACTIONS (8)
  - ABORTION INDUCED [None]
  - APLASIA [None]
  - BRAIN MALFORMATION [None]
  - CLEFT PALATE [None]
  - FOETAL MALFORMATION [None]
  - INTRA-UTERINE DEATH [None]
  - MATERNAL DRUGS AFFECTING FOETUS [None]
  - SPINA BIFIDA [None]
